FAERS Safety Report 12862041 (Version 4)
Quarter: 2017Q1

REPORT INFORMATION
  Report Type: Spontaneous
  Country: FR (occurrence: FR)
  Receive Date: 20161019
  Receipt Date: 20170130
  Transmission Date: 20170428
  Serious: Yes (Other)
  Sender: FDA-Public Use
  Company Number: FR-TEVA-704749ACC

PATIENT
  Age: 71 Year
  Sex: Male

DRUGS (18)
  1. VELCADE [Suspect]
     Active Substance: BORTEZOMIB
     Dosage: (1 IN 1CYCLE)
     Route: 042
     Dates: start: 20150512, end: 20160607
  2. VORICONAZOLE. [Concomitant]
     Active Substance: VORICONAZOLE
     Indication: BRONCHOPULMONARY ASPERGILLOSIS
     Route: 065
     Dates: start: 20160829
  3. REVLIMID [Concomitant]
     Active Substance: LENALIDOMIDE
     Dosage: 12 CYCLES
     Route: 065
     Dates: start: 20150512, end: 20160607
  4. REVLIMID [Concomitant]
     Active Substance: LENALIDOMIDE
     Dosage: THREE CYCLES
     Route: 065
     Dates: start: 201611
  5. TREANDA [Suspect]
     Active Substance: BENDAMUSTINE HYDROCHLORIDE
     Indication: PLASMA CELL MYELOMA
     Dosage: (1 IN 1 CYCLE)
     Route: 041
     Dates: start: 20160729, end: 20160929
  6. DEXAMETHASONE. [Concomitant]
     Active Substance: DEXAMETHASONE
     Dosage: 3 CYCLES
     Route: 048
     Dates: start: 201611
  7. LOPRESSOR [Concomitant]
     Active Substance: METOPROLOL TARTRATE
     Indication: HYPERTENSION
     Route: 065
  8. REVLIMID [Concomitant]
     Active Substance: LENALIDOMIDE
     Dosage: ONE CYCLE
     Route: 065
     Dates: start: 20160722
  9. VELCADE [Suspect]
     Active Substance: BORTEZOMIB
     Dosage: (1 IN 1CYCLE)
     Route: 042
     Dates: start: 20160722, end: 20160819
  10. TRIATEC                            /00885601/ [Concomitant]
     Active Substance: RAMIPRIL
     Indication: HYPERTENSION
     Dosage: 1 DOSAGE FORMS DAILY;
     Route: 048
     Dates: start: 20160729
  11. DEXAMETHASONE. [Concomitant]
     Active Substance: DEXAMETHASONE
     Dosage: ONE CYCLE
     Route: 048
     Dates: start: 20160722
  12. ZOPHREN                            /00955301/ [Concomitant]
     Active Substance: ONDANSETRON
     Indication: PREMEDICATION
     Route: 065
  13. CIPROFLOXACINE                     /00697201/ [Concomitant]
     Active Substance: CIPROFLOXACIN
     Indication: COUGH
     Route: 065
     Dates: start: 20160805
  14. DEXAMETHASONE. [Concomitant]
     Active Substance: DEXAMETHASONE
     Indication: PLASMA CELL MYELOMA
     Dosage: 4 CYCLES
     Route: 048
     Dates: start: 20140923, end: 20150106
  15. VELCADE [Suspect]
     Active Substance: BORTEZOMIB
     Indication: PLASMA CELL MYELOMA
     Dosage: 4 CYCLES (1 IN 1CYCLE)
     Route: 042
     Dates: start: 20140923, end: 20150106
  16. DEXAMETHASONE. [Concomitant]
     Active Substance: DEXAMETHASONE
     Dosage: 12 CYCLES
     Route: 048
     Dates: start: 20150512, end: 20160607
  17. REVLIMID [Concomitant]
     Active Substance: LENALIDOMIDE
     Indication: PLASMA CELL MYELOMA
     Dosage: 4 CYCLES
     Route: 065
     Dates: start: 20140923, end: 20150106
  18. AMOXICILLIN CLAVULANIC ACID [Concomitant]
     Active Substance: AMOXICILLIN\CLAVULANIC ACID
     Indication: COUGH
     Route: 065
     Dates: start: 20160805

REACTIONS (6)
  - Ear infection [Unknown]
  - Deafness bilateral [Recovered/Resolved]
  - Middle ear effusion [Unknown]
  - Ear pain [Unknown]
  - Ototoxicity [Unknown]
  - Tinnitus [Recovered/Resolved]

NARRATIVE: CASE EVENT DATE: 20160829
